FAERS Safety Report 22300678 (Version 2)
Quarter: 2023Q2

REPORT INFORMATION
  Report Type: Spontaneous
  Country: JP (occurrence: JP)
  Receive Date: 20230509
  Receipt Date: 20230630
  Transmission Date: 20230721
  Serious: Yes (Life-Threatening, Hospitalization)
  Sender: FDA-Public Use
  Company Number: JP-CHEMOCENTRYX, INC.-2022JPCCXI0420

PATIENT
  Age: 76 Year
  Sex: Female
  Weight: 42.5 kg

DRUGS (41)
  1. TAVNEOS [Suspect]
     Active Substance: AVACOPAN
     Indication: Microscopic polyangiitis
     Dosage: 30 MG BID (60 MG/DAY) (30 MG,2 IN 1 D)
     Route: 048
     Dates: start: 20220823, end: 20221008
  2. RABEPRAZOLE SODIUM [Suspect]
     Active Substance: RABEPRAZOLE SODIUM
     Indication: Prophylaxis against gastrointestinal ulcer
     Dosage: 10 MILLIGRAM(10 MG,1 IN 1 D)
     Route: 065
     Dates: start: 20220815, end: 20221013
  3. RABEPRAZOLE SODIUM [Suspect]
     Active Substance: RABEPRAZOLE SODIUM
     Indication: Prophylaxis against gastrointestinal ulcer
  4. RABEPRAZOLE SODIUM [Suspect]
     Active Substance: RABEPRAZOLE SODIUM
     Indication: Gastrooesophageal reflux disease
  5. ALFACALCIDOL [Suspect]
     Active Substance: ALFACALCIDOL
     Indication: Osteoporosis prophylaxis
     Dosage: 0.5 MICROGRAM, QD
     Route: 065
     Dates: start: 20220815, end: 20221013
  6. SULFAMETHOXAZOLE\TRIMETHOPRIM [Suspect]
     Active Substance: SULFAMETHOXAZOLE\TRIMETHOPRIM
     Indication: Pneumocystis jirovecii infection
     Dosage: 400/80 MG
     Route: 065
     Dates: start: 20220819, end: 20221015
  7. SULFAMETHOXAZOLE\TRIMETHOPRIM [Suspect]
     Active Substance: SULFAMETHOXAZOLE\TRIMETHOPRIM
     Indication: Prophylaxis
  8. SULFAMETHOXAZOLE\TRIMETHOPRIM [Suspect]
     Active Substance: SULFAMETHOXAZOLE\TRIMETHOPRIM
     Indication: Pneumocystis jirovecii infection
  9. SULFAMETHOXAZOLE\TRIMETHOPRIM [Suspect]
     Active Substance: SULFAMETHOXAZOLE\TRIMETHOPRIM
     Indication: Prophylaxis
  10. TENELIGLIPTIN [Suspect]
     Active Substance: TENELIGLIPTIN
     Indication: Steroid diabetes
     Dosage: 20 MG (20 MG,1 IN 1 D)
     Route: 065
     Dates: start: 20220822, end: 20221006
  11. TENELIGLIPTIN [Suspect]
     Active Substance: TENELIGLIPTIN
     Indication: Steroid diabetes
  12. AMLODIPINE [Concomitant]
     Active Substance: AMLODIPINE BESYLATE
     Indication: Hypertension
     Route: 065
     Dates: start: 20221013
  13. BONALON [Concomitant]
     Active Substance: ALENDRONATE SODIUM
     Indication: Osteoporosis prophylaxis
     Dosage: UNK
     Route: 065
     Dates: start: 20220822, end: 20221010
  14. BONALON [Concomitant]
     Active Substance: ALENDRONATE SODIUM
     Indication: Prophylaxis
  15. REPAGLINIDE [Concomitant]
     Active Substance: REPAGLINIDE
     Indication: Steroid diabetes
     Dosage: 0.75 MILLIGRAM (0.75 MG,1 IN 1 D)
     Route: 065
     Dates: start: 20220829, end: 20220909
  16. CLOTIAZEPAM [Concomitant]
     Active Substance: CLOTIAZEPAM
     Indication: Depression
     Dosage: 15 MG (15 MG,1 IN 1 D)
     Route: 065
     Dates: end: 20221012
  17. CLOTIAZEPAM [Concomitant]
     Active Substance: CLOTIAZEPAM
     Indication: Insomnia
     Dosage: RESTARTED IN THE EVENING.
     Route: 065
     Dates: start: 20221012
  18. CLOTIAZEPAM [Concomitant]
     Active Substance: CLOTIAZEPAM
     Indication: Depression
  19. CLOTIAZEPAM [Concomitant]
     Active Substance: CLOTIAZEPAM
     Indication: Insomnia
  20. MOSAPRIDE [Concomitant]
     Active Substance: MOSAPRIDE
     Indication: Abdominal discomfort
     Dosage: 15 MILLIGRAM (15 MG,1 IN 1 D)
     Route: 065
  21. MOSAPRIDE [Concomitant]
     Active Substance: MOSAPRIDE
     Indication: Abdominal discomfort
  22. BELSOMRA [Concomitant]
     Active Substance: SUVOREXANT
     Indication: Depression
     Dosage: 15 MILLIGRAM (15 MG,1 IN 1 D)
     Route: 065
  23. PREDONINE [Concomitant]
     Active Substance: PREDNISOLONE
     Indication: Microscopic polyangiitis
     Dosage: 25 MG (25 MG,1 IN 1 D)
     Route: 065
     Dates: start: 20220818
  24. PREDONINE [Concomitant]
     Active Substance: PREDNISOLONE
     Dosage: 20 MG (20 MG,1 IN 1 D)
     Route: 065
     Dates: start: 20220826
  25. PREDONINE [Concomitant]
     Active Substance: PREDNISOLONE
     Dosage: 17.5 MG (17.5 MG,1 IN 1 D)
     Route: 065
     Dates: start: 20220902
  26. PREDONINE [Concomitant]
     Active Substance: PREDNISOLONE
     Dosage: 15 MG (15 MG,1 IN 1 D)
     Route: 065
     Dates: start: 20220909
  27. PREDONINE [Concomitant]
     Active Substance: PREDNISOLONE
     Dosage: 12.5 MG (12.5 MG,1 IN 1 D)
     Route: 065
     Dates: start: 20220927
  28. PREDONINE [Concomitant]
     Active Substance: PREDNISOLONE
     Dosage: 40 MG (40 MG,1 IN 1 D)
     Route: 065
     Dates: start: 20221019, end: 20221024
  29. PREDONINE [Concomitant]
     Active Substance: PREDNISOLONE
     Dosage: 30 MG (30 MG,1 IN 1 D)
     Route: 065
     Dates: start: 20221025, end: 20221107
  30. PREDONINE [Concomitant]
     Active Substance: PREDNISOLONE
     Dosage: 20 MG (20 MG,1 IN 1 D)
     Route: 065
     Dates: start: 20221108, end: 20221114
  31. PREDONINE [Concomitant]
     Active Substance: PREDNISOLONE
     Dosage: 15 MG (15 MG,1 IN 1 D)
     Route: 065
     Dates: start: 20221115
  32. RITUXIMAB [Concomitant]
     Active Substance: RITUXIMAB
     Indication: Microscopic polyangiitis
     Dosage: 511.125 MG (PER DAY)
     Route: 042
     Dates: start: 20220819, end: 20220819
  33. RITUXIMAB [Concomitant]
     Active Substance: RITUXIMAB
     Dosage: 511.125 MG (PER DAY)
     Route: 042
     Dates: start: 20220826, end: 20220826
  34. RITUXIMAB [Concomitant]
     Active Substance: RITUXIMAB
     Dosage: 511.125 MG (PER DAY)
     Route: 042
     Dates: start: 20220902, end: 20220902
  35. AZELNIDIPINE [Concomitant]
     Active Substance: AZELNIDIPINE
     Indication: Hypertension
     Dosage: UNK
     Route: 065
     Dates: start: 2007
  36. CLARITHROMYCIN [Concomitant]
     Active Substance: CLARITHROMYCIN
     Indication: Bronchiectasis
     Dosage: UNK
     Route: 065
     Dates: start: 2009
  37. JANUVIA [Concomitant]
     Active Substance: SITAGLIPTIN PHOSPHATE
     Indication: Product used for unknown indication
     Dosage: INCREASED (75 MG)
     Route: 065
     Dates: start: 20221026
  38. SITAGLIPTIN [Concomitant]
     Active Substance: SITAGLIPTIN
     Indication: Diabetes mellitus
     Dosage: UNK
     Route: 065
  39. SITAGLIPTIN [Concomitant]
     Active Substance: SITAGLIPTIN
     Indication: Steroid diabetes
  40. ESOMEPRAZOLE [Concomitant]
     Active Substance: ESOMEPRAZOLE
     Indication: Gastrooesophageal reflux disease
     Dosage: UNK
     Route: 065
  41. ESZOPICLONE [Concomitant]
     Active Substance: ESZOPICLONE
     Indication: Insomnia
     Dosage: UNK
     Route: 065

REACTIONS (13)
  - Vanishing bile duct syndrome [Recovering/Resolving]
  - Jaundice [Unknown]
  - Cholangitis [Recovering/Resolving]
  - Hyperventilation [Unknown]
  - Cholestasis [Recovering/Resolving]
  - Yellow skin [Recovering/Resolving]
  - Decreased appetite [Recovering/Resolving]
  - Gallbladder enlargement [Recovering/Resolving]
  - Hepatic function abnormal [Recovering/Resolving]
  - Blood bilirubin increased [Recovering/Resolving]
  - Hepatic enzyme increased [Recovering/Resolving]
  - Hepatocellular injury [Recovering/Resolving]
  - Palpitations [Unknown]

NARRATIVE: CASE EVENT DATE: 20221006
